FAERS Safety Report 4916702-4 (Version None)
Quarter: 2006Q1

REPORT INFORMATION
  Report Type: 
  Country: None (occurrence: None)
  Receive Date: 20060113
  Receipt Date: 20051011
  Transmission Date: 20060701
  Serious: No
  Sender: FDA-Public Use
  Company Number: 2005SP003485

PATIENT
  Age: 36 Year
  Sex: Male

DRUGS (3)
  1. LUNESTA [Suspect]
     Indication: INSOMNIA
     Dosage: ORAL
     Route: 048
     Dates: start: 20050801
  2. ESCITALOPRAM (5 MG) [Suspect]
     Indication: ANXIETY
     Dosage: 5 MG;QD;ORAL
     Route: 048
     Dates: start: 20050401
  3. SINGULAIR [Concomitant]

REACTIONS (2)
  - DRUG INTERACTION [None]
  - SOMNOLENCE [None]
